FAERS Safety Report 7716617-2 (Version None)
Quarter: 2011Q3

REPORT INFORMATION
  Report Type: 
  Country: None (occurrence: None)
  Receive Date: 20110829
  Receipt Date: 20110818
  Transmission Date: 20111222
  Serious: Yes (Other)
  Sender: FDA-Public Use
  Company Number: US-ASTRAZENECA-2011SE50021

PATIENT
  Age: 32982 Day
  Sex: Male
  Weight: 68.5 kg

DRUGS (2)
  1. SYMBICORT [Suspect]
     Indication: CHRONIC OBSTRUCTIVE PULMONARY DISEASE
     Dosage: 160/4.5 UG BID
     Route: 055
     Dates: start: 20110721, end: 20110818
  2. SPIRIVA [Concomitant]
     Indication: CHRONIC OBSTRUCTIVE PULMONARY DISEASE
     Dosage: BID
     Route: 048
     Dates: start: 20110721

REACTIONS (2)
  - CARDIAC FAILURE CONGESTIVE [None]
  - OVERDOSE [None]
